FAERS Safety Report 20606445 (Version 1)
Quarter: 2022Q1

REPORT INFORMATION
  Report Type: Spontaneous
  Country: US (occurrence: US)
  Receive Date: 20220317
  Receipt Date: 20220317
  Transmission Date: 20220424
  Serious: Yes (Life-Threatening, Hospitalization, Other)
  Sender: FDA-Public Use
  Company Number: US-SUN PHARMACEUTICAL INDUSTRIES LTD-2022R1-329759

PATIENT

DRUGS (1)
  1. DOCETAXEL [Suspect]
     Active Substance: DOCETAXEL
     Indication: Prostate cancer metastatic
     Dosage: 75 MILLIGRAM/SQ. METER(SINGLE DOSE)
     Route: 065

REACTIONS (6)
  - Toxicity to various agents [Unknown]
  - Acute respiratory distress syndrome [Unknown]
  - Tachycardia [Unknown]
  - Pyrexia [Unknown]
  - Hypoxia [Unknown]
  - Tachypnoea [Unknown]
